FAERS Safety Report 9706051 (Version 1)
Quarter: 2013Q4

REPORT INFORMATION
  Report Type: Spontaneous
  Country: GB (occurrence: GB)
  Receive Date: 20131123
  Receipt Date: 20131123
  Transmission Date: 20140711
  Serious: Yes (Other)
  Sender: FDA-Public Use
  Company Number: GB-AMGEN-GBRSP2013081895

PATIENT
  Age: 59 Year
  Sex: Male

DRUGS (5)
  1. XGEVA [Suspect]
     Indication: PRODUCT USED FOR UNKNOWN INDICATION
     Dosage: 120 MG, UNK
     Route: 058
     Dates: start: 201202
  2. PAZOPANIB [Concomitant]
     Dosage: 800 MG, QD
  3. METOCLOPRAMIDE [Concomitant]
  4. HALOPERIDOL [Concomitant]
  5. ADCAL D3 [Concomitant]

REACTIONS (10)
  - Osteonecrosis of jaw [Unknown]
  - Spinal compression fracture [Unknown]
  - Metastases to bone [Unknown]
  - Pulmonary mass [Unknown]
  - Dysgeusia [Unknown]
  - Neck pain [Unknown]
  - Decreased appetite [Unknown]
  - Oral pain [Unknown]
  - Nausea [Recovered/Resolved]
  - Fatigue [Unknown]
